FAERS Safety Report 25105545 (Version 1)
Quarter: 2025Q1

REPORT INFORMATION
  Report Type: Spontaneous
  Country: US (occurrence: US)
  Receive Date: 20250321
  Receipt Date: 20250321
  Transmission Date: 20250409
  Serious: No
  Sender: ESPERION THERAPEUTICS
  Company Number: US-ESPERIONTHERAPEUTICS-2024USA01747

PATIENT
  Age: 76 Year
  Sex: Male

DRUGS (4)
  1. NEXLETOL [Suspect]
     Active Substance: BEMPEDOIC ACID
     Indication: Product used for unknown indication
     Dosage: 180 MILLIGRAM, QD
     Route: 065
     Dates: start: 2024
  2. PRAVASTATIN [Concomitant]
     Active Substance: PRAVASTATIN
     Route: 065
  3. ALLOPURINOL [Concomitant]
     Active Substance: ALLOPURINOL
     Route: 065
  4. ASPIRIN [Concomitant]
     Active Substance: ASPIRIN
     Route: 065

REACTIONS (10)
  - Tendonitis [Unknown]
  - Muscle spasms [Unknown]
  - Tendon rupture [Unknown]
  - Atrioventricular block [Unknown]
  - Gout [Unknown]
  - Arthralgia [Unknown]
  - Tendon disorder [Unknown]
  - Skin wrinkling [Unknown]
  - Paraesthesia [Unknown]
  - Inappropriate schedule of product administration [Unknown]

NARRATIVE: CASE EVENT DATE: 20240501
